FAERS Safety Report 5501331-4 (Version None)
Quarter: 2007Q4

REPORT INFORMATION
  Report Type: 
  Country: None (occurrence: None)
  Receive Date: 20071026
  Receipt Date: 20071016
  Transmission Date: 20080405
  Serious: No
  Sender: FDA-Public Use
  Company Number: TPA2007A01859

PATIENT
  Age: 51 Year
  Sex: Male
  Weight: 88.4514 kg

DRUGS (5)
  1. ROZEREM [Suspect]
     Indication: SLEEP DISORDER
     Dosage: 8 MG, HS, PER ORAL
     Route: 048
     Dates: start: 20070101, end: 20070905
  2. SOMA [Concomitant]
  3. MORPHINE [Concomitant]
  4. MELATONIN (MELATONIN) [Concomitant]
  5. NEXIUM [Concomitant]

REACTIONS (4)
  - ABNORMAL DREAMS [None]
  - HALLUCINATIONS, MIXED [None]
  - MIDDLE INSOMNIA [None]
  - SOMNAMBULISM [None]
